FAERS Safety Report 15690771 (Version 1)
Quarter: 2018Q4

REPORT INFORMATION
  Report Type: Spontaneous
  Country: US (occurrence: US)
  Receive Date: 20181205
  Receipt Date: 20181205
  Transmission Date: 20190205
  Serious: No
  Sender: FDA-Public Use
  Company Number: US-THERAVANCE-2018-000044

PATIENT
  Sex: Male

DRUGS (3)
  1. DAPTOMYCIN. [Concomitant]
     Active Substance: DAPTOMYCIN
     Indication: STAPHYLOCOCCAL INFECTION
  2. VANCOMYCIN [Concomitant]
     Active Substance: VANCOMYCIN
     Indication: STAPHYLOCOCCAL INFECTION
  3. VIBATIV [Suspect]
     Active Substance: TELAVANCIN HYDROCHLORIDE
     Indication: STAPHYLOCOCCAL INFECTION
     Dosage: UNK
     Route: 042
     Dates: end: 20180510

REACTIONS (3)
  - Nausea [Unknown]
  - Blood creatinine increased [Unknown]
  - Vomiting [Unknown]

NARRATIVE: CASE EVENT DATE: 2018
